FAERS Safety Report 6457266-6 (Version None)
Quarter: 2009Q4

REPORT INFORMATION
  Report Type: 
  Country: None (occurrence: None)
  Receive Date: 20091125
  Receipt Date: 20091116
  Transmission Date: 20100525
  Serious: Yes (Other)
  Sender: FDA-Public Use
  Company Number: US-PFIZER INC-2009299013

PATIENT
  Sex: Male
  Weight: 136.5 kg

DRUGS (6)
  1. LIPITOR [Suspect]
  2. NIASPAN [Concomitant]
     Dosage: 500 MG, 1X/DAY
     Dates: end: 20091008
  3. SIMVASTATIN [Concomitant]
     Dosage: 20 MG, 1X/DAY
     Dates: end: 20091008
  4. NICOTINIC ACID [Concomitant]
  5. ACETYLSALICYLIC ACID [Concomitant]
  6. GEMFIBROZIL [Concomitant]

REACTIONS (2)
  - DRUG HYPERSENSITIVITY [None]
  - JAUNDICE [None]
